FAERS Safety Report 9732688 (Version 1)
Quarter: 2013Q4

REPORT INFORMATION
  Report Type: Spontaneous
  Country: US (occurrence: US)
  Receive Date: 20131205
  Receipt Date: 20131205
  Transmission Date: 20140711
  Serious: No
  Sender: FDA-Public Use
  Company Number: US-009507513-1311USA008536

PATIENT
  Sex: Male

DRUGS (4)
  1. CORICIDIN HCP MAXIMUM STRENGTH FLU [Suspect]
     Indication: NASOPHARYNGITIS
     Dosage: 1 DF, ONCE
     Route: 048
  2. CORICIDIN HCP MAXIMUM STRENGTH FLU [Suspect]
     Indication: RHINORRHOEA
  3. CORICIDIN HCP MAXIMUM STRENGTH FLU [Suspect]
     Indication: HEADACHE
  4. CORICIDIN HCP MAXIMUM STRENGTH FLU [Suspect]
     Indication: PAIN

REACTIONS (4)
  - Hypersensitivity [Unknown]
  - Visual impairment [Unknown]
  - Cough [Unknown]
  - Sneezing [Unknown]
